FAERS Safety Report 21104962 (Version 1)
Quarter: 2022Q3

REPORT INFORMATION
  Report Type: Spontaneous
  Country: TW (occurrence: TW)
  Receive Date: 20220720
  Receipt Date: 20220720
  Transmission Date: 20221027
  Serious: Yes (Hospitalization, Other)
  Sender: FDA-Public Use
  Company Number: TW-UNIQUE PHARMACEUTICAL LABORATORIES, A DIV. OF JBCPL-2022UNI000034

PATIENT
  Age: 39 Year
  Sex: Male

DRUGS (3)
  1. LITHIUM CARBONATE [Suspect]
     Active Substance: LITHIUM CARBONATE
     Indication: Bipolar disorder
     Dosage: 600 MILLIGRAM, BID
     Route: 065
  2. RISPERIDONE [Concomitant]
     Active Substance: RISPERIDONE
     Indication: Bipolar disorder
     Dosage: 2 MILLIGRAM, BID
     Route: 065
  3. FLURAZEPAM [Concomitant]
     Active Substance: FLURAZEPAM HYDROCHLORIDE
     Indication: Bipolar disorder
     Dosage: 60 MILLIGRAM, QID
     Route: 065

REACTIONS (7)
  - Polyneuropathy [Unknown]
  - Toxicity to various agents [Unknown]
  - Diarrhoea [Unknown]
  - Dehydration [Unknown]
  - Asthenia [Unknown]
  - Somnolence [Recovered/Resolved]
  - Acute kidney injury [Unknown]
